FAERS Safety Report 6698124-1 (Version None)
Quarter: 2010Q2

REPORT INFORMATION
  Report Type: 
  Country: None (occurrence: None)
  Receive Date: 20100427
  Receipt Date: 20100416
  Transmission Date: 20101027
  Serious: Yes (Hospitalization)
  Sender: FDA-Public Use
  Company Number: TW-PFIZER INC-2009185561

PATIENT
  Age: 66 Year
  Sex: Male
  Weight: 60 kg

DRUGS (11)
  1. *PLACEBO [Suspect]
     Indication: COLORECTAL CANCER
     Dosage: 0 MG, 1X/DAY
     Route: 048
     Dates: start: 20080908, end: 20090314
  2. IRINOTECAN HCL [Suspect]
     Indication: COLORECTAL CANCER
     Dosage: 280 MG, EVERY 2 WEEKS
     Route: 042
     Dates: start: 20080908, end: 20090304
  3. FLUOROURACIL [Suspect]
     Indication: COLORECTAL CANCER
     Dosage: 600 MG, EVERY 2 WEEKS
     Route: 040
     Dates: start: 20080908, end: 20090304
  4. FLUOROURACIL [Suspect]
     Dosage: 3700 MG, EVERY 2 WEEKS
     Route: 041
     Dates: start: 20080908, end: 20090306
  5. CALCIUM FOLINATE [Suspect]
     Indication: COLORECTAL CANCER
     Dosage: 600 MG, EVERY 2 WEEKS
     Route: 042
     Dates: start: 20080908, end: 20090304
  6. TAMSULOSIN [Concomitant]
     Indication: BENIGN PROSTATIC HYPERPLASIA
     Dosage: 0.2 MG, 1X/DAY
     Route: 048
     Dates: start: 20080908
  7. ROSIGLITAZONE [Concomitant]
     Indication: HYPERGLYCAEMIA
     Dosage: 4 MG, 1X/DAY
     Route: 048
     Dates: start: 20080908
  8. GLYBURIDE [Concomitant]
     Indication: HYPERGLYCAEMIA
     Dosage: 5 MG, 1X/DAY
     Route: 048
     Dates: start: 20080908
  9. ACEMETACIN [Concomitant]
     Indication: ANALGESIC THERAPY
     Dosage: 90 MG, 2X/DAY
     Route: 048
     Dates: start: 20090310
  10. BENTYL [Concomitant]
     Indication: ANALGESIC THERAPY
     Dosage: 10 MG, 3X/DAY
     Route: 048
     Dates: start: 20090310
  11. MAGNESIUM OXIDE [Concomitant]
     Indication: CONSTIPATION
     Dosage: 250 MG, 3X/DAY
     Route: 048
     Dates: start: 20090310

REACTIONS (2)
  - HAEMATURIA [None]
  - HYDRONEPHROSIS [None]
